FAERS Safety Report 9759524 (Version 1)
Quarter: 2013Q4

REPORT INFORMATION
  Report Type: Spontaneous
  Country: US (occurrence: US)
  Receive Date: 20131216
  Receipt Date: 20131216
  Transmission Date: 20140711
  Serious: No
  Sender: FDA-Public Use
  Company Number: US-BAYER-2013-153163

PATIENT
  Age: 56 Year
  Sex: Female
  Weight: 83.9 kg

DRUGS (2)
  1. ALEVE CAPLET [Suspect]
     Dosage: 2 DF, UNK
     Route: 048
     Dates: start: 201310
  2. ALEVE CAPLET [Suspect]
     Dosage: 4 TO 6 DAILY SOMETIMES

REACTIONS (2)
  - Incorrect drug administration duration [None]
  - Extra dose administered [None]
